FAERS Safety Report 8778388 (Version 1)
Quarter: 2012Q4

REPORT INFORMATION
  Report Type: 
  Country: US (occurrence: US)
  Receive Date: 20120912
  Receipt Date: 20120912
  Transmission Date: 20130627
  Serious: No
  Sender: FDA-Public Use
  Company Number: US-ASTRAZENECA-2012SE60077

PATIENT
  Sex: Male

DRUGS (3)
  1. SEROQUEL XR [Suspect]
     Indication: BIPOLAR II DISORDER
     Route: 048
     Dates: end: 201208
  2. SEROQUEL XR [Suspect]
     Indication: BIPOLAR II DISORDER
     Route: 048
  3. PRISTIQUE [Concomitant]
     Indication: BIPOLAR II DISORDER

REACTIONS (3)
  - Asperger^s disorder [Unknown]
  - Headache [Unknown]
  - Weight increased [Unknown]
